FAERS Safety Report 17260784 (Version 1)
Quarter: 2020Q1

REPORT INFORMATION
  Report Type: Spontaneous
  Country: US (occurrence: US)
  Receive Date: 20200113
  Receipt Date: 20200113
  Transmission Date: 20200409
  Serious: Yes (Hospitalization, Other)
  Sender: FDA-Public Use
  Company Number: US-AUROBINDO-AUR-APL-2020-001183

PATIENT
  Age: 57 Year
  Sex: Male

DRUGS (8)
  1. CLOZAPINE. [Suspect]
     Active Substance: CLOZAPINE
     Indication: SCHIZOAFFECTIVE DISORDER BIPOLAR TYPE
     Dosage: 900 MILLIGRAM, ONCE A DAY
     Route: 065
  2. NICOTINE. [Concomitant]
     Active Substance: NICOTINE
     Indication: PRODUCT USED FOR UNKNOWN INDICATION
     Dosage: 14 MILLIGRAM, ONCE A DAY
     Route: 062
  3. SENNA [Concomitant]
     Active Substance: SENNA LEAF\SENNOSIDES\SENNOSIDES A AND B
     Indication: PRODUCT USED FOR UNKNOWN INDICATION
     Dosage: UNK, (COMBINATION BOWEL REGIMEN THAT CONTAINED DOCUSATE, SENNA, AND POLYETHYLENE GLYCOL (MIRALAX)
     Route: 065
  4. DOCUSATE [Concomitant]
     Active Substance: DOCUSATE
     Indication: PRODUCT USED FOR UNKNOWN INDICATION
     Dosage: UNK, (COMBINATION BOWEL REGIMEN THAT CONTAINED DOCUSATE, SENNA, AND POLYETHYLENE GLYCOL (MIRALAX)
     Route: 065
  5. LEVOTHYROXINE. [Concomitant]
     Active Substance: LEVOTHYROXINE
     Indication: PRODUCT USED FOR UNKNOWN INDICATION
     Dosage: 0.25 MILLIGRAM, ONCE A DAY
     Route: 065
  6. MIRALAX [Concomitant]
     Active Substance: POLYETHYLENE GLYCOL 3350
     Indication: PRODUCT USED FOR UNKNOWN INDICATION
     Dosage: UNK, (COMBINATION BOWEL REGIMEN THAT CONTAINED DOCUSATE, SENNA, AND POLYETHYLENE GLYCOL (MIRALAX)
     Route: 065
  7. DIVALPROEX SODIUM. [Concomitant]
     Active Substance: DIVALPROEX SODIUM
     Indication: SEIZURE PROPHYLAXIS
     Dosage: 500 MILLIGRAM
  8. CLOZAPINE. [Suspect]
     Active Substance: CLOZAPINE
     Dosage: 500 MILLIGRAM, ONCE A DAY
     Route: 065

REACTIONS (9)
  - Blood potassium increased [Unknown]
  - Drug withdrawal convulsions [Unknown]
  - Subdural haematoma [Unknown]
  - Abdominal distension [Not Recovered/Not Resolved]
  - Cerebrovascular accident [Unknown]
  - Intestinal dilatation [Not Recovered/Not Resolved]
  - Constipation [Not Recovered/Not Resolved]
  - Dizziness [Unknown]
  - Orthostatic hypotension [Unknown]
